FAERS Safety Report 9747647 (Version 1)
Quarter: 2013Q4

REPORT INFORMATION
  Report Type: Spontaneous
  Country: GB (occurrence: None)
  Receive Date: 20131206
  Receipt Date: 20131206
  Transmission Date: 20140711
  Serious: Yes (Other)
  Sender: FDA-Public Use
  Company Number: GB-DEXPHARM-20131118

PATIENT
  Age: 45 Year
  Sex: Male

DRUGS (1)
  1. OMEPRAZOLE [Suspect]
     Indication: GASTROOESOPHAGEAL REFLUX DISEASE
     Dosage: 20 MG MILLIGRAM(S) SPE DOSAGE/ INTERVAL; 1 IN 1 DAYS CUMULATIVE DOSE: 140.0 MG MILLIGRILLAM(S)
     Route: 048
     Dates: start: 20131018, end: 20131118

REACTIONS (2)
  - Breast tenderness [None]
  - Gynaecomastia [None]
